FAERS Safety Report 19394751 (Version 1)
Quarter: 2021Q2

REPORT INFORMATION
  Report Type: Spontaneous
  Country: US (occurrence: US)
  Receive Date: 20210609
  Receipt Date: 20210609
  Transmission Date: 20210717
  Serious: No
  Sender: FDA-Public Use
  Company Number: US-ABBVIE-20K-163-3601090-00

PATIENT
  Age: 75 Year
  Sex: Female

DRUGS (11)
  1. IRON [Concomitant]
     Active Substance: IRON
     Indication: ANAEMIA
  2. IMDUR [Concomitant]
     Active Substance: ISOSORBIDE MONONITRATE
     Indication: MYOCARDIAL BRIDGING
  3. POTASSIUM CHLORIDE. [Suspect]
     Active Substance: POTASSIUM CHLORIDE
     Indication: MINERAL SUPPLEMENTATION
     Route: 048
     Dates: start: 20200805
  4. VESPIN [Concomitant]
     Indication: CHRONIC OBSTRUCTIVE PULMONARY DISEASE
  5. LASIX [Concomitant]
     Active Substance: FUROSEMIDE
     Indication: FLUID RETENTION
  6. LISINOPRIL. [Concomitant]
     Active Substance: LISINOPRIL
     Indication: HYPERTENSION
  7. DILTIAZEM. [Concomitant]
     Active Substance: DILTIAZEM
     Indication: MYOCARDIAL BRIDGING
  8. DALIRESP [Concomitant]
     Active Substance: ROFLUMILAST
     Indication: CHRONIC OBSTRUCTIVE PULMONARY DISEASE
  9. GABAPENTIN. [Concomitant]
     Active Substance: GABAPENTIN
     Indication: NEUROPATHY PERIPHERAL
  10. METFORMIN [Concomitant]
     Active Substance: METFORMIN HYDROCHLORIDE
     Indication: TYPE 2 DIABETES MELLITUS
  11. QVAR [Concomitant]
     Active Substance: BECLOMETHASONE DIPROPIONATE
     Indication: CHRONIC OBSTRUCTIVE PULMONARY DISEASE

REACTIONS (5)
  - Food intolerance [Not Recovered/Not Resolved]
  - Gait disturbance [Not Recovered/Not Resolved]
  - Food aversion [Not Recovered/Not Resolved]
  - Eructation [Not Recovered/Not Resolved]
  - Nausea [Not Recovered/Not Resolved]

NARRATIVE: CASE EVENT DATE: 2020
